FAERS Safety Report 9780725 (Version 1)
Quarter: 2013Q4

REPORT INFORMATION
  Report Type: Report from Study
  Country: CA (occurrence: CA)
  Receive Date: 20131224
  Receipt Date: 20131224
  Transmission Date: 20140711
  Serious: Yes (Other)
  Sender: FDA-Public Use
  Company Number: CA-JNJFOC-20131213374

PATIENT
  Age: 58 Year
  Sex: Female
  Weight: 69.7 kg

DRUGS (2)
  1. REMICADE [Suspect]
     Indication: CROHN^S DISEASE
     Route: 042
     Dates: start: 20130815
  2. PREDNISONE [Concomitant]
     Route: 065

REACTIONS (1)
  - Episcleritis [Recovering/Resolving]
